FAERS Safety Report 6720515-0 (Version None)
Quarter: 2010Q2

REPORT INFORMATION
  Report Type: 
  Country: None (occurrence: None)
  Receive Date: 20100506
  Receipt Date: 20100422
  Transmission Date: 20101027
  Serious: Yes (Hospitalization, Other)
  Sender: FDA-Public Use
  Company Number: 167-20484-09090533

PATIENT
  Sex: Male

DRUGS (13)
  1. INNOHEP [Suspect]
     Dosage: TRANSPLACENTAL
     Route: 064
     Dates: start: 20011119, end: 20011231
  2. INNOHEP [Suspect]
     Dosage: TRANSPLACENTAL
     Route: 064
     Dates: start: 20011231, end: 20020726
  3. PENICILLIN (BENZYLPENICILLIN SODIUM) [Concomitant]
  4. ACETAMINOPHEN [Concomitant]
  5. BETAMETHASONE [Concomitant]
  6. AMOXICILLIN [Concomitant]
  7. RANITIDINE [Concomitant]
  8. MAXOLON [Concomitant]
  9. CRYOPRECIPITATED AHF [Concomitant]
  10. SODIUM CITRATE [Concomitant]
  11. HEAVY MARCAIN WITH FENTANYL (FENTANYL CITRATE, BUPIVACAINE HYDROCHLORI [Concomitant]
  12. AUGMENTIN '125' [Concomitant]
  13. SYNTOCIN (OXYTOCIN) [Concomitant]

REACTIONS (3)
  - CAESAREAN SECTION [None]
  - MATERNAL DRUGS AFFECTING FOETUS [None]
  - PREMATURE BABY [None]
